FAERS Safety Report 8226312-1 (Version None)
Quarter: 2012Q1

REPORT INFORMATION
  Report Type: 
  Country: None (occurrence: None)
  Receive Date: 20120307
  Receipt Date: 20091104
  Transmission Date: 20120608
  Serious: Yes (Disabling)
  Sender: FDA-Public Use
  Company Number: PHEH2009US15247

PATIENT
  Age: 58 Year
  Sex: Male
  Weight: 84.4 kg

DRUGS (1)
  1. EVEROLIMUS (RAD) UNKNOWN [Suspect]
     Indication: METASTATIC RENAL CELL CARCINOMA
     Dosage: 10 MG, QD, ORAL
     Route: 048
     Dates: start: 20090722, end: 20090805

REACTIONS (1)
  - STOMATITIS [None]
